FAERS Safety Report 14831440 (Version 1)
Quarter: 2018Q2

REPORT INFORMATION
  Report Type: Report from Study
  Country: US (occurrence: US)
  Receive Date: 20180501
  Receipt Date: 20180501
  Transmission Date: 20180711
  Serious: No
  Sender: FDA-Public Use
  Company Number: US-AMGEN-USASP2018056949

PATIENT
  Age: 46 Year
  Sex: Female

DRUGS (1)
  1. ENBREL [Suspect]
     Active Substance: ETANERCEPT
     Indication: RHEUMATOID ARTHRITIS
     Dosage: 50 MG, QWK
     Route: 065
     Dates: start: 201711

REACTIONS (8)
  - Injection site bruising [Not Recovered/Not Resolved]
  - Adverse drug reaction [Unknown]
  - Amnesia [Unknown]
  - Injection site pain [Recovered/Resolved]
  - Injection site erythema [Unknown]
  - Disturbance in attention [Unknown]
  - Sleep disorder [Unknown]
  - Product storage error [Unknown]

NARRATIVE: CASE EVENT DATE: 2017
